FAERS Safety Report 4375702-6 (Version None)
Quarter: 2004Q2

REPORT INFORMATION
  Report Type: 
  Country: None (occurrence: None)
  Receive Date: 20040607
  Receipt Date: 20040526
  Transmission Date: 20050107
  Serious: Yes (Hospitalization, Other)
  Sender: FDA-Public Use
  Company Number: HQWYE120627MAY04

PATIENT
  Age: 25 Year
  Sex: Male

DRUGS (2)
  1. ADVIL [Suspect]
     Indication: HEADACHE
  2. ADVIL [Suspect]
     Indication: MYALGIA

REACTIONS (3)
  - CHEST PAIN [None]
  - EOSINOPHILIC PNEUMONIA [None]
  - PLEURITIC PAIN [None]
